FAERS Safety Report 16172864 (Version 1)
Quarter: 2019Q2

REPORT INFORMATION
  Report Type: Report from Study
  Country: None (occurrence: US)
  Receive Date: 20190409
  Receipt Date: 20190409
  Transmission Date: 20190711
  Serious: Yes (Other)
  Sender: FDA-Public Use
  Company Number: US-ABBVIE-19K-163-2734025-00

PATIENT
  Age: 56 Year
  Sex: Female

DRUGS (1)
  1. HUMIRA [Suspect]
     Active Substance: ADALIMUMAB
     Indication: HIDRADENITIS
     Route: 058
     Dates: start: 201903

REACTIONS (6)
  - Osteoporotic fracture [Unknown]
  - Loss of consciousness [Unknown]
  - Muscle strain [Unknown]
  - Fall [Unknown]
  - Feeling hot [Unknown]
  - Chest pain [Unknown]

NARRATIVE: CASE EVENT DATE: 2019
